FAERS Safety Report 23526541 (Version 1)
Quarter: 2024Q1

REPORT INFORMATION
  Report Type: Spontaneous
  Country: US (occurrence: None)
  Receive Date: 20240214
  Receipt Date: 20240214
  Transmission Date: 20240409
  Serious: Yes (Other)
  Sender: FDA-Public Use
  Company Number: None

PATIENT
  Age: 64 Year
  Sex: Female
  Weight: 89.55 kg

DRUGS (12)
  1. METFORMIN [Suspect]
     Active Substance: METFORMIN HYDROCHLORIDE
     Indication: Glycosylated haemoglobin increased
     Dosage: OTHER QUANTITY : 30 TABLET(S);?FREQUENCY : DAILY;?
     Route: 048
     Dates: start: 20240102, end: 20240122
  2. DEVICE [Concomitant]
     Active Substance: DEVICE
  3. ESOMEPRAZOLE [Concomitant]
     Active Substance: ESOMEPRAZOLE
  4. MELOXICAM [Concomitant]
     Active Substance: MELOXICAM
  5. VALIUM [Concomitant]
     Active Substance: DIAZEPAM
  6. Hctz/Lisoinptil [Concomitant]
  7. ROSUVASTATIN [Concomitant]
     Active Substance: ROSUVASTATIN
  8. VITAMIN D3 [Concomitant]
     Active Substance: CHOLECALCIFEROL
  9. FISH OIL [Concomitant]
     Active Substance: FISH OIL
  10. VALACYCLOVIR [Concomitant]
     Active Substance: VALACYCLOVIR HYDROCHLORIDE
  11. HERBALS\TURMERIC [Concomitant]
     Active Substance: HERBALS\TURMERIC
  12. ACETAMINOPHEN [Concomitant]
     Active Substance: ACETAMINOPHEN

REACTIONS (4)
  - Abdominal distension [None]
  - Flatulence [None]
  - Nausea [None]
  - Diarrhoea [None]

NARRATIVE: CASE EVENT DATE: 20240112
